FAERS Safety Report 13130330 (Version 1)
Quarter: 2017Q1

REPORT INFORMATION
  Report Type: Spontaneous
  Country: US (occurrence: US)
  Receive Date: 20170119
  Receipt Date: 20170119
  Transmission Date: 20170428
  Serious: Yes (Other)
  Sender: FDA-Public Use
  Company Number: US-TEVA-730263USA

PATIENT
  Sex: Female
  Weight: 55 kg

DRUGS (3)
  1. PREVACID [Interacting]
     Active Substance: LANSOPRAZOLE
     Route: 065
  2. NEXIUM [Interacting]
     Active Substance: ESOMEPRAZOLE MAGNESIUM
     Route: 065
     Dates: start: 201607
  3. DIAZEPAM. [Suspect]
     Active Substance: DIAZEPAM
     Route: 065
     Dates: start: 201607

REACTIONS (4)
  - Withdrawal syndrome [Unknown]
  - Poisoning [Unknown]
  - Drug interaction [Unknown]
  - Overdose [Unknown]
